FAERS Safety Report 7361231-4 (Version None)
Quarter: 2011Q1

REPORT INFORMATION
  Report Type: 
  Country: None (occurrence: None)
  Receive Date: 20110318
  Receipt Date: 20110304
  Transmission Date: 20110831
  Serious: No
  Sender: FDA-Public Use
  Company Number: US-BAYER-2011-021173

PATIENT
  Sex: Female
  Weight: 57 kg

DRUGS (4)
  1. ALEVE (CAPLET) [Suspect]
     Indication: ARTHRALGIA
     Dosage: 220 MG, QD, 50 CAPLETS
     Route: 048
     Dates: start: 20110101, end: 20110301
  2. ALEVE (CAPLET) [Suspect]
     Indication: SLEEP DISORDER THERAPY
     Dosage: 220 MG, QD, 24 CAPLETS
     Route: 048
     Dates: start: 20110101, end: 20110301
  3. AMLODIPINE BESYLATE AND BENAZEPRIL HCL [Concomitant]
  4. TENORMIN [Concomitant]

REACTIONS (2)
  - URTICARIA [None]
  - ASTHENIA [None]
